FAERS Safety Report 7673392-8 (Version None)
Quarter: 2011Q3

REPORT INFORMATION
  Report Type: 
  Country: None (occurrence: None)
  Receive Date: 20110810
  Receipt Date: 20110801
  Transmission Date: 20111222
  Serious: Yes (Other)
  Sender: FDA-Public Use
  Company Number: US-JNJFOC-20060401986

PATIENT
  Sex: Female

DRUGS (4)
  1. RISPERDAL [Suspect]
     Indication: HALLUCINATION
     Route: 065
  2. RISPERDAL [Suspect]
     Indication: DEPRESSION
     Route: 065
  3. SEROQUEL [Suspect]
     Indication: PRODUCT USED FOR UNKNOWN INDICATION
     Route: 065
  4. RISPERDAL [Suspect]
     Indication: INSOMNIA
     Route: 065

REACTIONS (4)
  - NAUSEA [None]
  - INJURY [None]
  - FLUSHING [None]
  - TYPE 2 DIABETES MELLITUS [None]
